FAERS Safety Report 24863841 (Version 1)
Quarter: 2025Q1

REPORT INFORMATION
  Report Type: Spontaneous
  Country: US (occurrence: US)
  Receive Date: 20250120
  Receipt Date: 20250120
  Transmission Date: 20250408
  Serious: No
  Sender: Phathom Pharmaceuticals
  Company Number: US-PHATHOM PHARMACEUTICALS INC.-2024PHT01157

PATIENT
  Age: 44 Year
  Sex: Female

DRUGS (2)
  1. VOQUEZNA [Suspect]
     Active Substance: VONOPRAZAN FUMARATE
     Indication: Gastrointestinal inflammation
     Dosage: 20 MG, 1X/DAY
     Route: 048
     Dates: start: 202410, end: 202410
  2. VOQUEZNA [Suspect]
     Active Substance: VONOPRAZAN FUMARATE
     Indication: Vomiting
     Dosage: 20 MG, 1X/DAY
     Route: 048
     Dates: start: 20241019, end: 20241019

REACTIONS (5)
  - Drug hypersensitivity [Not Recovered/Not Resolved]
  - Throat tightness [Recovered/Resolved]
  - Sensation of foreign body [Recovered/Resolved]
  - Rash [Not Recovered/Not Resolved]
  - Off label use [Recovered/Resolved]

NARRATIVE: CASE EVENT DATE: 20241001
